FAERS Safety Report 7070113-7 (Version None)
Quarter: 2010Q4

REPORT INFORMATION
  Report Type: 
  Country: None (occurrence: None)
  Receive Date: 20101028
  Receipt Date: 20100827
  Transmission Date: 20110411
  Serious: No
  Sender: FDA-Public Use
  Company Number: US-WYE-H17264610

PATIENT
  Sex: Female
  Weight: 31.78 kg

DRUGS (1)
  1. EFFEXOR [Suspect]
     Indication: DEPRESSION
     Route: 048
     Dates: start: 20100801, end: 20100827

REACTIONS (3)
  - HEADACHE [None]
  - RASH PRURITIC [None]
  - TINNITUS [None]
